FAERS Safety Report 13940200 (Version 2)
Quarter: 2022Q2

REPORT INFORMATION
  Report Type: Report from Study
  Country: CA (occurrence: CA)
  Receive Date: 20170906
  Receipt Date: 20220510
  Transmission Date: 20220721
  Serious: Yes (Other)
  Sender: FDA-Public Use
  Company Number: PHHY2015CA126384

PATIENT
  Sex: Male

DRUGS (2)
  1. ELTROMBOPAG OLAMINE [Suspect]
     Active Substance: ELTROMBOPAG OLAMINE
     Indication: Immune thrombocytopenia
     Dosage: 50 MG, QD
     Route: 048
     Dates: start: 20150526
  2. ELTROMBOPAG OLAMINE [Suspect]
     Active Substance: ELTROMBOPAG OLAMINE
     Dosage: UNK
     Route: 048
     Dates: start: 20200823

REACTIONS (6)
  - Gastrointestinal haemorrhage [Unknown]
  - Blindness unilateral [Unknown]
  - Agitation [Unknown]
  - Ill-defined disorder [Unknown]
  - Muscle spasms [Unknown]
  - Platelet count increased [Unknown]
